FAERS Safety Report 9290474 (Version 1)
Quarter: 2013Q2

REPORT INFORMATION
  Report Type: Spontaneous
  Country: US (occurrence: None)
  Receive Date: 20130514
  Receipt Date: 20130514
  Transmission Date: 20140414
  Serious: Yes (Disabling)
  Sender: FDA-Public Use
  Company Number: None

PATIENT
  Age: 67 Year
  Sex: Female
  Weight: 54.43 kg

DRUGS (10)
  1. PROLIA 60MG/ML AMGEN [Suspect]
     Indication: OSTEOPOROSIS
     Dosage: INJECTION UNDER THE SKIN
     Dates: start: 20130205
  2. PROLIA 60MG/ML AMGEN [Suspect]
     Indication: PROPHYLAXIS
     Dosage: INJECTION UNDER THE SKIN
     Dates: start: 20130205
  3. BENTYL [Concomitant]
  4. PRAVASTATIN [Concomitant]
  5. TEGRETOL [Concomitant]
  6. CALCIUM [Concomitant]
  7. MULTI VITAMIN [Concomitant]
  8. VITAMIN B 12 [Concomitant]
  9. VITAMIN D [Concomitant]
  10. GLUCOSOMINE CONDROYTIN MSM [Concomitant]

REACTIONS (5)
  - Arthritis [None]
  - Carpal tunnel syndrome [None]
  - Trigeminal neuralgia [None]
  - Spinal osteoarthritis [None]
  - Back pain [None]
